FAERS Safety Report 16962544 (Version 1)
Quarter: 2019Q4

REPORT INFORMATION
  Report Type: Spontaneous
  Country: GB (occurrence: GB)
  Receive Date: 20191025
  Receipt Date: 20191025
  Transmission Date: 20200122
  Serious: Yes (Hospitalization, Other)
  Sender: FDA-Public Use
  Company Number: GB-ADVANZ PHARMA-GSH201106-001532

PATIENT

DRUGS (9)
  1. WARFARIN [Interacting]
     Active Substance: WARFARIN
     Dosage: 6 MG, QOD,6 MG AND 7 MG ON ALTERNATE DAYS.
  2. ALLOPURINOL. [Concomitant]
     Active Substance: ALLOPURINOL
     Dosage: 100 MG, QD
  3. WARFARIN [Interacting]
     Active Substance: WARFARIN
     Dosage: 6 MG, QD
  4. MICONAZOLE. [Interacting]
     Active Substance: MICONAZOLE
     Indication: DIARRHOEA
     Dosage: UNK,  FOUR TIMES DAILY.
  5. WARFARIN [Interacting]
     Active Substance: WARFARIN
     Dosage: 7 MG, QOD
  6. DIGOXIN. [Suspect]
     Active Substance: DIGOXIN
     Dosage: 125 UG, QD
  7. FRUSEMIDE [Concomitant]
     Active Substance: FUROSEMIDE
     Dosage: 40 MG, QD
  8. POTASSIUM [Concomitant]
     Active Substance: POTASSIUM
     Dosage: TWO TABLETS DAILY
  9. POTASSIUM [Concomitant]
     Active Substance: POTASSIUM
     Dosage: TWO TABLETS DAILY

REACTIONS (3)
  - Drug interaction [Recovered/Resolved]
  - Haematoma [Unknown]
  - Prothrombin time ratio increased [Recovered/Resolved]
